FAERS Safety Report 6203228-3 (Version None)
Quarter: 2009Q2

REPORT INFORMATION
  Report Type: 
  Country: None (occurrence: None)
  Receive Date: 20090522
  Receipt Date: 20090522
  Transmission Date: 20091009
  Serious: No
  Sender: FDA-Public Use
  Company Number: None

PATIENT
  Age: 63 Year
  Sex: Male
  Weight: 169.55 kg

DRUGS (1)
  1. LISINOPRIL AND HYDROCHLOROTHIAZIDE [Suspect]
     Dosage: 24/20 MG EVERY DAY PO
     Route: 048
     Dates: start: 20090330, end: 20090417

REACTIONS (2)
  - CONDITION AGGRAVATED [None]
  - GOUT [None]
